FAERS Safety Report 25019994 (Version 1)
Quarter: 2025Q1

REPORT INFORMATION
  Report Type: Spontaneous
  Country: AT (occurrence: AT)
  Receive Date: 20250227
  Receipt Date: 20250227
  Transmission Date: 20250408
  Serious: Yes (Other)
  Sender: MERCK SHARP & DOHME LLC
  Company Number: AT-GSK-AT2025EME014185

PATIENT
  Sex: Female

DRUGS (3)
  1. VARICELLA-ZOSTER VACCINE NOS [Suspect]
     Active Substance: VARICELLA-ZOSTER VACCINE
     Indication: Prophylaxis
  2. VARICELLA-ZOSTER VACCINE NOS [Suspect]
     Active Substance: VARICELLA-ZOSTER VACCINE
     Indication: Prophylaxis
     Dates: start: 202306
  3. VARICELLA-ZOSTER VACCINE NOS [Suspect]
     Active Substance: VARICELLA-ZOSTER VACCINE

REACTIONS (2)
  - Vaccination failure [Unknown]
  - Herpes zoster [Unknown]

NARRATIVE: CASE EVENT DATE: 20241101
